FAERS Safety Report 20218729 (Version 6)
Quarter: 2024Q1

REPORT INFORMATION
  Report Type: Spontaneous
  Country: GB (occurrence: GB)
  Receive Date: 20211222
  Receipt Date: 20240117
  Transmission Date: 20240410
  Serious: Yes (Death)
  Sender: FDA-Public Use
  Company Number: GB-Merck Healthcare KGaA-9287849

PATIENT
  Age: 67 Year
  Sex: Male

DRUGS (5)
  1. AVELUMAB [Suspect]
     Active Substance: AVELUMAB
     Indication: Metastatic renal cell carcinoma
     Route: 042
     Dates: start: 20210209, end: 20210308
  2. AXITINIB [Suspect]
     Active Substance: AXITINIB
     Indication: Metastatic renal cell carcinoma
     Route: 048
     Dates: start: 20210209
  3. AXITINIB [Suspect]
     Active Substance: AXITINIB
     Dosage: 5MG INCREASED TO 7MG FROM THE 1ST TO THE 2ND INFUSION
     Route: 048
     Dates: start: 20210308
  4. CETIRIZINE [Concomitant]
     Active Substance: CETIRIZINE HYDROCHLORIDE
     Indication: Product used for unknown indication
  5. ACETAMINOPHEN [Concomitant]
     Active Substance: ACETAMINOPHEN
     Indication: Product used for unknown indication

REACTIONS (7)
  - Disease progression [Fatal]
  - Haemorrhage [Fatal]
  - Rib fracture [Unknown]
  - Neoplasm malignant [Unknown]
  - Respiratory arrest [Unknown]
  - Syncope [Unknown]
  - Hypersensitivity [Recovered/Resolved]

NARRATIVE: CASE EVENT DATE: 20210209
